FAERS Safety Report 10289527 (Version 2)
Quarter: 2014Q3

REPORT INFORMATION
  Report Type: Report from Study
  Country: US (occurrence: US)
  Receive Date: 20140710
  Receipt Date: 20140721
  Transmission Date: 20150326
  Serious: Yes (Death, Other)
  Sender: FDA-Public Use
  Company Number: PHEH2014US013568

PATIENT
  Age: 62 Year
  Sex: Male

DRUGS (3)
  1. FLUDARABINE [Suspect]
     Active Substance: FLUDARABINE PHOSPHATE
     Dosage: UNK UKN, UNK
  2. MELPHALAN [Suspect]
     Active Substance: MELPHALAN
     Dosage: UNK UKN, UNK
  3. EXJADE [Suspect]
     Active Substance: DEFERASIROX
     Indication: MYELODYSPLASTIC SYNDROME
     Dosage: UNK UKN, UNK

REACTIONS (19)
  - Pulseless electrical activity [Unknown]
  - Nausea [Unknown]
  - Death [Fatal]
  - Pancytopenia [Unknown]
  - Epistaxis [Unknown]
  - Vomiting [Unknown]
  - Multi-organ failure [Unknown]
  - Asthenia [Unknown]
  - Mucosal inflammation [Unknown]
  - Mental status changes [Not Recovered/Not Resolved]
  - Sedation [Unknown]
  - Hypoglycaemia [Unknown]
  - Hypotension [Unknown]
  - Fungaemia [Unknown]
  - Hepatic enzyme abnormal [Unknown]
  - Obstructive airways disorder [Unknown]
  - Back pain [Recovering/Resolving]
  - Fatigue [Unknown]
  - Ammonia increased [Unknown]

NARRATIVE: CASE EVENT DATE: 20140601
